FAERS Safety Report 12769950 (Version 2)
Quarter: 2017Q1

REPORT INFORMATION
  Report Type: Spontaneous
  Country: GB (occurrence: GB)
  Receive Date: 20160922
  Receipt Date: 20170201
  Transmission Date: 20170428
  Serious: Yes (Death, Hospitalization)
  Sender: FDA-Public Use
  Company Number: GB-ACCORD-044178

PATIENT
  Age: 91 Year
  Sex: Female

DRUGS (4)
  1. FUROSEMIDE. [Concomitant]
     Active Substance: FUROSEMIDE
     Indication: CARDIAC FAILURE CONGESTIVE
  2. ACETYLSALICYLIC ACID [Concomitant]
     Active Substance: ASPIRIN
     Indication: ANTICOAGULANT THERAPY
  3. CALCIUM CARBONATE/CALCIUM LACTOGLUCONATE [Concomitant]
  4. RAMIPRIL. [Suspect]
     Active Substance: RAMIPRIL
     Indication: HYPERTENSION
     Dates: start: 20160818, end: 20160820

REACTIONS (7)
  - Cerebrovascular accident [Fatal]
  - Pneumonia aspiration [Fatal]
  - Hypopnoea [Recovered/Resolved]
  - Wrong technique in product usage process [Unknown]
  - Dysphagia [Unknown]
  - Angioedema [Recovering/Resolving]
  - Productive cough [Recovering/Resolving]

NARRATIVE: CASE EVENT DATE: 20160818
